FAERS Safety Report 24532765 (Version 2)
Quarter: 2024Q4

REPORT INFORMATION
  Report Type: Spontaneous
  Country: US (occurrence: US)
  Receive Date: 20241022
  Receipt Date: 20241104
  Transmission Date: 20250114
  Serious: Yes (Other)
  Sender: TEVA
  Company Number: US-TEVA-VS-3253916

PATIENT
  Age: 54 Year
  Sex: Female

DRUGS (4)
  1. AJOVY [Suspect]
     Active Substance: FREMANEZUMAB-VFRM
     Indication: Migraine
     Dosage: STRENGTH 225/1.5 MG/ML
     Route: 065
     Dates: start: 2022
  2. AJOVY [Suspect]
     Active Substance: FREMANEZUMAB-VFRM
  3. EPINEPHRINE [Suspect]
     Active Substance: EPINEPHRINE
     Indication: Tenolysis
     Route: 065
     Dates: start: 202308
  4. LIDOCAINE [Suspect]
     Active Substance: LIDOCAINE
     Indication: Tenolysis
     Route: 065
     Dates: start: 202308

REACTIONS (4)
  - Necrosis [Recovered/Resolved]
  - Ischaemia [Unknown]
  - Peripheral vascular disorder [Unknown]
  - Vasoconstriction [Unknown]

NARRATIVE: CASE EVENT DATE: 20230101
